FAERS Safety Report 5650986-2 (Version None)
Quarter: 2008Q1

REPORT INFORMATION
  Report Type: 
  Country: None (occurrence: None)
  Receive Date: 20080305
  Receipt Date: 20080229
  Transmission Date: 20080703
  Serious: Yes (Life-Threatening, Hospitalization)
  Sender: FDA-Public Use
  Company Number: BE-WYE-H02585408

PATIENT
  Age: 5 Day

DRUGS (1)
  1. CORDARONE [Suspect]
     Indication: SUPRAVENTRICULAR TACHYCARDIA
     Dosage: ^RECEIVED 10 TIMES HIGHER DOSE THAN PRESCRIBED^
     Route: 042
     Dates: start: 20080101, end: 20080101

REACTIONS (6)
  - ACCIDENTAL OVERDOSE [None]
  - CARDIAC ARREST [None]
  - CARDIOGENIC SHOCK [None]
  - HEPATIC FAILURE [None]
  - NERVOUS SYSTEM DISORDER [None]
  - RENAL FAILURE [None]
